FAERS Safety Report 7940773-4 (Version None)
Quarter: 2011Q4

REPORT INFORMATION
  Report Type: 
  Country: None (occurrence: None)
  Receive Date: 20111128
  Receipt Date: 20111122
  Transmission Date: 20120403
  Serious: Yes (Hospitalization, Other)
  Sender: FDA-Public Use
  Company Number: JP-PFIZER INC-2011273522

PATIENT
  Age: 73 Year
  Sex: Male

DRUGS (4)
  1. METHYCOBAL [Concomitant]
     Route: 048
  2. CELECOXIB [Suspect]
     Indication: BACK PAIN
     Dosage: 200 MG/DAY
     Route: 048
     Dates: start: 20110822, end: 20110926
  3. BUFFERIN [Suspect]
     Dosage: UNK
  4. LUDIOMIL [Concomitant]
     Route: 048

REACTIONS (2)
  - GASTRIC ULCER [None]
  - HELICOBACTER TEST POSITIVE [None]
